FAERS Safety Report 16931814 (Version 1)
Quarter: 2019Q4

REPORT INFORMATION
  Report Type: Report from Study
  Country: GB (occurrence: GB)
  Receive Date: 20191017
  Receipt Date: 20191017
  Transmission Date: 20200122
  Serious: Yes (Hospitalization)
  Sender: FDA-Public Use
  Company Number: GB-PFIZER INC-2019447187

PATIENT
  Sex: Male
  Weight: 23.8 kg

DRUGS (39)
  1. CYTARABINE. [Concomitant]
     Active Substance: CYTARABINE
     Dosage: 94 MG, 2X/DAY
     Route: 042
     Dates: start: 20170930, end: 20171009
  2. FLUCONAZOLE. [Concomitant]
     Active Substance: FLUCONAZOLE
     Indication: PROPHYLAXIS
     Dosage: 100 MG, DAILY
     Dates: start: 20171011
  3. GENTAMYCIN [Concomitant]
     Active Substance: GENTAMICIN
     Dosage: 150 MG, DAILY
     Dates: start: 20171020, end: 20171022
  4. CETRIMIDE [Concomitant]
     Active Substance: CETRIMIDE
     Indication: FEBRILE NEUTROPENIA
     Dosage: 1.9 G, 2X/DAY
     Dates: start: 20170928, end: 20171005
  5. CIPROFLOXACIN. [Concomitant]
     Active Substance: CIPROFLOXACIN
     Indication: PROPHYLAXIS
     Dosage: 250 MG, 2X/DAY
     Dates: start: 20171001
  6. ONDANSETRON [Concomitant]
     Active Substance: ONDANSETRON
     Indication: NAUSEA
     Dosage: 4 MG, 3X/DAY
     Dates: start: 20170929, end: 20171018
  7. CASPOFUNGIN [Concomitant]
     Active Substance: CASPOFUNGIN
     Indication: PYREXIA
     Dosage: 64 MG, DAILY
     Dates: start: 20171001, end: 20171001
  8. CASPOFUNGIN [Concomitant]
     Active Substance: CASPOFUNGIN
     Dosage: 46 MG, DAILY
     Dates: start: 20171002, end: 20171010
  9. GENTAMYCIN [Concomitant]
     Active Substance: GENTAMICIN
     Dosage: 150 MG, DAILY
     Dates: start: 20171016, end: 20171017
  10. CYCLIZINE [Concomitant]
     Active Substance: CYCLIZINE
     Indication: ANTIEMETIC SUPPORTIVE CARE
     Dosage: 25 MG, AS NEEDED
     Dates: start: 20171016, end: 20171016
  11. AMOXICILLIN. [Concomitant]
     Active Substance: AMOXICILLIN
     Indication: PROPHYLAXIS
     Dosage: 500 MG, 2X/DAY
     Dates: start: 20171001, end: 20171021
  12. AMOXICILLIN. [Concomitant]
     Active Substance: AMOXICILLIN
     Dosage: 500 MG, 2X/DAY
     Dates: start: 20171023, end: 20171024
  13. PARACETAMOL [Concomitant]
     Active Substance: ACETAMINOPHEN
     Indication: PAIN
     Dosage: 375 MG, AS NEEDED
     Dates: start: 20170928, end: 20171022
  14. CEFTAZIDIME. [Concomitant]
     Active Substance: CEFTAZIDIME
     Indication: FEBRILE NEUTROPENIA
     Dosage: 1.9 G, 2X/DAY
     Dates: start: 20170928, end: 20171005
  15. CEFTAZIDIME. [Concomitant]
     Active Substance: CEFTAZIDIME
     Dosage: 1.9 G, 2X/DAY
     Dates: start: 20171016, end: 20171018
  16. CHLORPHENAMINE [Concomitant]
     Active Substance: CHLORPHENIRAMINE MALEATE
     Dosage: 2 MG, (OTHER, 6X DAILY)
     Dates: start: 20171005, end: 20171006
  17. TRANEXAMIC ACID. [Concomitant]
     Active Substance: TRANEXAMIC ACID
     Indication: PROPHYLAXIS
     Dosage: 375 MG, 2X/DAY
     Dates: start: 20171018, end: 20171025
  18. CYTARABINE. [Concomitant]
     Active Substance: CYTARABINE
     Indication: ACUTE MYELOID LEUKAEMIA
     Dosage: 30 MG, AS NEEDED
     Route: 037
     Dates: start: 20170929, end: 20170929
  19. CHLORPHENAMINE [Concomitant]
     Active Substance: CHLORPHENIRAMINE MALEATE
     Indication: PROPHYLAXIS
     Dosage: 5 MG, DAILY
     Dates: start: 20171002, end: 20171005
  20. GENTAMYCIN [Concomitant]
     Active Substance: GENTAMICIN
     Dosage: 150 MG, DAILY
     Dates: start: 20171024, end: 20171027
  21. METAPRAMINE [Concomitant]
     Dosage: UNK
  22. LORAZEPAM. [Concomitant]
     Active Substance: LORAZEPAM
     Indication: MALAISE
     Dosage: 1 G, 3X/DAY
     Dates: start: 20171003, end: 20171010
  23. SODIUM PICOSULFATE [Concomitant]
     Active Substance: SODIUM PICOSULFATE
     Indication: CONSTIPATION
     Dosage: 5 MG, DAILY
     Dates: start: 20171026, end: 20171028
  24. MITOXANTRONE HCL [Suspect]
     Active Substance: MITOXANTRONE HYDROCHLORIDE
     Indication: ACUTE MYELOID LEUKAEMIA
     Dosage: 12 MG/M2, DAILY
     Route: 042
     Dates: start: 20170929, end: 20171002
  25. METHOTREXATE SODIUM. [Concomitant]
     Active Substance: METHOTREXATE SODIUM
     Dosage: 12 MG, UNK (OTHER)
     Route: 037
     Dates: start: 20170928, end: 20170928
  26. GENTAMYCIN [Concomitant]
     Active Substance: GENTAMICIN
     Indication: FEBRILE NEUTROPENIA
     Dosage: 152 MG, DAILY
     Dates: start: 20170928, end: 20171004
  27. METOCLOPRAMIDE. [Concomitant]
     Active Substance: METOCLOPRAMIDE
     Indication: NAUSEA
     Dosage: 3.8 MG, 3X/DAY
     Dates: start: 20170929, end: 20171005
  28. GEMTUZUMAB OZOGAMICIN [Suspect]
     Active Substance: GEMTUZUMAB OZOGAMICIN
     Indication: ACUTE MYELOID LEUKAEMIA
     Dosage: 2.8 MG, UNK (OTHER)
     Route: 042
     Dates: start: 20171002, end: 20171005
  29. VITAMIN K [VITAMIN K NOS] [Concomitant]
     Indication: COAGULOPATHY
     Dosage: 7.5 MG, DAILY
     Dates: start: 20170929, end: 20171002
  30. ALLOPURINOL. [Concomitant]
     Active Substance: ALLOPURINOL
     Indication: HYPERURICAEMIA
     Dosage: 90 MG, 3X/DAY
     Dates: start: 20170923, end: 20171002
  31. METOCLOPRAMIDE. [Concomitant]
     Active Substance: METOCLOPRAMIDE
     Dosage: 5 MG, 2X/DAY
     Dates: start: 20171005, end: 20171018
  32. DULCOLAX (BISACODYL) [Concomitant]
     Active Substance: BISACODYL
     Indication: CONSTIPATION
     Dosage: 2.5 MG, DAILY
     Dates: start: 20171004, end: 20171004
  33. CEFTAZIDIME. [Concomitant]
     Active Substance: CEFTAZIDIME
     Dosage: 1.9 G, 2X/DAY
     Dates: start: 20171024, end: 20171027
  34. HYDROCORTISONE. [Concomitant]
     Active Substance: HYDROCORTISONE
     Indication: THROMBOCYTOPENIA
     Dosage: 100 MG, AS NEEDED
     Dates: start: 20171023, end: 20171023
  35. AMOXICILLIN. [Concomitant]
     Active Substance: AMOXICILLIN
     Dosage: 500 MG, 2X/DAY
     Dates: start: 20171027
  36. LORAZEPAM. [Concomitant]
     Active Substance: LORAZEPAM
     Indication: VOMITING
     Dosage: 0.5 MG, 2X/DAY
     Dates: start: 20171016, end: 20171018
  37. ORAMORPH SR SUSTAINED RELEASE [Concomitant]
     Active Substance: MORPHINE SULFATE
     Indication: PAIN
     Dosage: 5 MG, AS NEEDED
     Dates: start: 20170929, end: 20171002
  38. ORAMORPH SR SUSTAINED RELEASE [Concomitant]
     Active Substance: MORPHINE SULFATE
     Dosage: 5 MG, AS NEEDED
     Dates: start: 20171025, end: 20171026
  39. CEFTAZIDIME. [Concomitant]
     Active Substance: CEFTAZIDIME
     Dosage: 1.9 MG, 2X/DAY
     Dates: start: 20171020, end: 20171023

REACTIONS (1)
  - Febrile neutropenia [Recovered/Resolved]

NARRATIVE: CASE EVENT DATE: 20171024
